FAERS Safety Report 9735554 (Version 2)
Quarter: 2015Q3

REPORT INFORMATION
  Report Type: Spontaneous
  Country: US (occurrence: US)
  Receive Date: 20131206
  Receipt Date: 20150804
  Transmission Date: 20151125
  Serious: No
  Sender: FDA-Public Use
  Company Number: US-GILEAD-2009-0023681

PATIENT
  Age: 51 Year
  Sex: Female
  Weight: 75.75 kg

DRUGS (14)
  1. LETAIRIS [Suspect]
     Active Substance: AMBRISENTAN
     Indication: PULMONARY ARTERIAL HYPERTENSION
     Route: 048
     Dates: start: 20090626
  2. PREDNISONE. [Concomitant]
     Active Substance: PREDNISONE
  3. CALCIUM+D [Concomitant]
  4. METOPROLOL [Concomitant]
     Active Substance: METOPROLOL
  5. CLONAZEPAM. [Concomitant]
     Active Substance: CLONAZEPAM
  6. ASPIRIN. [Concomitant]
     Active Substance: ASPIRIN
  7. METHOTREXATE [Concomitant]
     Active Substance: METHOTREXATE
  8. NIFEDICAL XL [Concomitant]
     Active Substance: NIFEDIPINE
  9. ZOCOR [Concomitant]
     Active Substance: SIMVASTATIN
  10. CELLCEPT [Concomitant]
     Active Substance: MYCOPHENOLATE MOFETIL\MYCOPHENOLATE MOFETIL HYDROCHLORIDE
  11. LEXAPRO [Concomitant]
     Active Substance: ESCITALOPRAM OXALATE
  12. FOLIC ACID. [Concomitant]
     Active Substance: FOLIC ACID
  13. PLAVIX [Concomitant]
     Active Substance: CLOPIDOGREL BISULFATE
  14. LEVOTHYROXINE. [Concomitant]
     Active Substance: LEVOTHYROXINE

REACTIONS (1)
  - Nasal congestion [Unknown]
